FAERS Safety Report 16452619 (Version 1)
Quarter: 2019Q2

REPORT INFORMATION
  Report Type: Spontaneous
  Country: US (occurrence: US)
  Receive Date: 20190619
  Receipt Date: 20190619
  Transmission Date: 20190711
  Serious: Yes (Other)
  Sender: FDA-Public Use
  Company Number: US-BAYER-2019-112548

PATIENT

DRUGS (1)
  1. COPPERTONE SPORT FREE SPF 50 [Suspect]
     Active Substance: AVOBENZONE\HOMOSALATE\OCTISALATE\OCTOCRYLENE

REACTIONS (3)
  - Burn infection [None]
  - Drug hypersensitivity [None]
  - Application site burn [None]
